FAERS Safety Report 9138200 (Version 2)
Quarter: 2013Q3

REPORT INFORMATION
  Report Type: Report from Study
  Country: US (occurrence: US)
  Receive Date: 20130304
  Receipt Date: 20130802
  Transmission Date: 20140515
  Serious: Yes (Other)
  Sender: FDA-Public Use
  Company Number: US-B.I. PHARMACEUTICALS,INC./RIDGEFIELD-2013-BI-05217GD

PATIENT
  Age: 81 Year
  Sex: Female
  Weight: 77.3 kg

DRUGS (1)
  1. PRADAXA [Suspect]
     Dosage: 300 MG
     Route: 048

REACTIONS (1)
  - Dyspnoea [Unknown]
